FAERS Safety Report 9667462 (Version 1)
Quarter: 2013Q4

REPORT INFORMATION
  Report Type: Spontaneous
  Country: US (occurrence: US)
  Receive Date: 20131101
  Receipt Date: 20131101
  Transmission Date: 20140711
  Serious: Yes (Other)
  Sender: FDA-Public Use
  Company Number: US-SAVIENT-2012S1000065

PATIENT
  Age: 59 Year
  Sex: Male

DRUGS (6)
  1. KRYSTEXXA INJECTION [Suspect]
     Indication: GOUT
     Route: 042
     Dates: start: 20120326, end: 20120326
  2. PREDNISONE [Concomitant]
     Indication: PREMEDICATION
     Dates: start: 20120326, end: 20120326
  3. DEXAMETHASONE [Concomitant]
     Indication: PREMEDICATION
     Dates: start: 20120326, end: 20120326
  4. ANTIHISTAMINES [Concomitant]
     Indication: PREMEDICATION
     Dates: start: 20120326, end: 20120326
  5. COLCRYS [Concomitant]
     Indication: PROPHYLAXIS
  6. INDOCIN /00003801/ [Concomitant]
     Indication: GOUTY TOPHUS

REACTIONS (1)
  - Type IV hypersensitivity reaction [Recovered/Resolved]
